FAERS Safety Report 10167517 (Version 1)
Quarter: 2014Q2

REPORT INFORMATION
  Report Type: Spontaneous
  Country: US (occurrence: US)
  Receive Date: 20140512
  Receipt Date: 20140512
  Transmission Date: 20141212
  Serious: Yes (Other)
  Sender: FDA-Public Use
  Company Number: US-PFIZER INC-2014125501

PATIENT
  Sex: Male

DRUGS (1)
  1. INLYTA [Suspect]
     Dosage: UNK
     Dates: start: 201312

REACTIONS (3)
  - Posterior reversible encephalopathy syndrome [Unknown]
  - Blindness cortical [Recovered/Resolved]
  - Hypertension [Unknown]
